FAERS Safety Report 6756953-X (Version None)
Quarter: 2010Q2

REPORT INFORMATION
  Report Type: 
  Country: None (occurrence: None)
  Receive Date: 20100603
  Receipt Date: 20100603
  Transmission Date: 20101027
  Serious: Yes (Hospitalization)
  Sender: FDA-Public Use
  Company Number: None

PATIENT
  Age: 73 Year
  Sex: Male
  Weight: 107.05 kg

DRUGS (1)
  1. INSULIN [Suspect]
     Indication: DIABETES MELLITUS
     Dosage: 50 UNITS BID SQ
     Route: 058
     Dates: start: 20100101

REACTIONS (2)
  - HYPOGLYCAEMIA [None]
  - TREATMENT NONCOMPLIANCE [None]
